FAERS Safety Report 10066264 (Version 1)
Quarter: 2014Q2

REPORT INFORMATION
  Report Type: Spontaneous
  Country: JP (occurrence: JP)
  Receive Date: 20140408
  Receipt Date: 20140408
  Transmission Date: 20141212
  Serious: Yes (Other)
  Sender: FDA-Public Use
  Company Number: JP-ASTELLAS-2014JP003241

PATIENT
  Age: 63 Year
  Sex: Male

DRUGS (5)
  1. PROGRAF [Suspect]
     Indication: EYE SWELLING
     Dosage: 1.5 MG, UNKNOWN/D
     Route: 065
     Dates: start: 2011, end: 2011
  2. CORTICOSTEROID NOS [Concomitant]
     Indication: EYE SWELLING
     Dosage: 1000 MG, UNKNOWN/D
     Route: 041
     Dates: start: 20101111
  3. CORTICOSTEROID NOS [Concomitant]
     Dosage: 500 MG, UNKNOWN/D
     Route: 041
     Dates: start: 2011, end: 2011
  4. CORTICOSTEROID NOS [Concomitant]
     Dosage: 1000 MG, UNKNOWN/D
     Route: 041
     Dates: start: 2011
  5. CORTICOSTEROID NOS [Concomitant]
     Route: 041

REACTIONS (2)
  - Drug ineffective for unapproved indication [Unknown]
  - Eye swelling [Unknown]
